FAERS Safety Report 7161461-0 (Version None)
Quarter: 2010Q4

REPORT INFORMATION
  Report Type: 
  Country: None (occurrence: None)
  Receive Date: 20101215
  Receipt Date: 20101206
  Transmission Date: 20110411
  Serious: Yes (Other)
  Sender: FDA-Public Use
  Company Number: PHHY2010CO82719

PATIENT
  Sex: Male

DRUGS (1)
  1. LAMISIL [Suspect]
     Dosage: 250 MG, 28 PILLS
     Route: 048

REACTIONS (3)
  - DRUG TOXICITY [None]
  - RESPIRATORY DISORDER [None]
  - SKIN DISORDER [None]
